FAERS Safety Report 4994974-8 (Version None)
Quarter: 2006Q2

REPORT INFORMATION
  Report Type: 
  Country: None (occurrence: None)
  Receive Date: 20060503
  Receipt Date: 20060425
  Transmission Date: 20061013
  Serious: Yes (Hospitalization)
  Sender: FDA-Public Use
  Company Number: 200611691GDS

PATIENT
  Age: 74 Year
  Sex: Female
  Weight: 75.9 kg

DRUGS (14)
  1. SORAFENIB [Suspect]
     Indication: RENAL CELL CARCINOMA STAGE UNSPECIFIED
     Dosage: 400 MG, BID, ORAL
     Route: 048
     Dates: start: 20060412, end: 20060420
  2. HUMALOG [Concomitant]
  3. NOVORAPID [Concomitant]
  4. FUROSEMIDE [Concomitant]
  5. IMDUR [Concomitant]
  6. METOPROLOL SUCCINATE [Concomitant]
  7. RENITEC [Concomitant]
  8. LIPITOR [Concomitant]
  9. INSULATARD NPH HUMAN [Concomitant]
  10. PROPAVAN [Concomitant]
  11. STILNOCT [Concomitant]
  12. NOVALUZID [Concomitant]
  13. PROCHLORPERAZINE [Concomitant]
  14. SELOKEN [Concomitant]

REACTIONS (2)
  - SYNCOPE [None]
  - TACHYCARDIA [None]
